FAERS Safety Report 21190418 (Version 1)
Quarter: 2022Q3

REPORT INFORMATION
  Report Type: Spontaneous
  Country: RU (occurrence: None)
  Receive Date: 20220809
  Receipt Date: 20220809
  Transmission Date: 20221027
  Serious: Yes (Other)
  Sender: FDA-Public Use
  Company Number: 2022A276456

PATIENT
  Age: 8 Year
  Sex: Male
  Weight: 20 kg

DRUGS (1)
  1. KOSELUGO [Suspect]
     Active Substance: SELUMETINIB
     Indication: Neurofibroma
     Route: 048
     Dates: start: 20211209

REACTIONS (1)
  - Blood creatine phosphokinase increased [Not Recovered/Not Resolved]

NARRATIVE: CASE EVENT DATE: 20220221
